FAERS Safety Report 20437975 (Version 1)
Quarter: 2022Q1

REPORT INFORMATION
  Report Type: Spontaneous
  Country: US (occurrence: None)
  Receive Date: 20220204
  Receipt Date: 20220204
  Transmission Date: 20220423
  Serious: Yes (Hospitalization)
  Sender: FDA-Public Use
  Company Number: None

PATIENT
  Age: 67 Year
  Sex: Female

DRUGS (8)
  1. INGREZZA [Suspect]
     Active Substance: VALBENAZINE
     Dosage: FREQUENCY : DAILY;?
     Route: 048
  2. ALBUTEROL [Concomitant]
  3. AZELASTINE [Concomitant]
     Active Substance: AZELASTINE
  4. HYDROYZINE [Concomitant]
  5. IPRATROPIUM [Concomitant]
     Active Substance: IPRATROPIUM
  6. MELOXICAM [Concomitant]
  7. MIRTAZAPINE [Concomitant]
  8. VENLAFAXINE [Concomitant]
     Active Substance: VENLAFAXINE HYDROCHLORIDE

REACTIONS (2)
  - Malaise [None]
  - Pain in jaw [None]

NARRATIVE: CASE EVENT DATE: 20220115
